FAERS Safety Report 10958351 (Version 1)
Quarter: 2015Q1

REPORT INFORMATION
  Report Type: Report from Study
  Country: IT (occurrence: IT)
  Receive Date: 20150326
  Receipt Date: 20150326
  Transmission Date: 20150721
  Serious: Yes (Other)
  Sender: FDA-Public Use
  Company Number: IT-ABBVIE-15P-083-1365932-00

PATIENT
  Age: 82 Year
  Sex: Female
  Weight: 75 kg

DRUGS (1)
  1. DUODOPA [Suspect]
     Active Substance: CARBIDOPA\LEVODOPA
     Indication: PARKINSON^S DISEASE
     Dosage: MD 10.0(+3) CR 4.4 ED 2.2
     Route: 050
     Dates: start: 20150309, end: 20150322

REACTIONS (4)
  - Headache [Unknown]
  - Nausea [Unknown]
  - Syncope [Unknown]
  - Transient ischaemic attack [Unknown]

NARRATIVE: CASE EVENT DATE: 20150322
